FAERS Safety Report 9776039 (Version 1)
Quarter: 2013Q4

REPORT INFORMATION
  Report Type: Spontaneous
  Country: US (occurrence: US)
  Receive Date: 20131220
  Receipt Date: 20131220
  Transmission Date: 20140711
  Serious: Yes (Other)
  Sender: FDA-Public Use
  Company Number: US-ELI_LILLY_AND_COMPANY-US201312004597

PATIENT
  Age: 49 Year
  Sex: Female

DRUGS (3)
  1. CYMBALTA [Suspect]
     Indication: DEPRESSION
     Dosage: 30 MG, SINGLE
     Route: 065
     Dates: start: 20131126, end: 20131126
  2. CYMBALTA [Suspect]
     Indication: ANXIETY
  3. SYNTHROID [Concomitant]
     Indication: PRODUCT USED FOR UNKNOWN INDICATION
     Dosage: 100 MG, QD
     Route: 065

REACTIONS (8)
  - Cerebrovascular accident [Unknown]
  - Dysphemia [Not Recovered/Not Resolved]
  - Headache [Unknown]
  - Tremor [Unknown]
  - Muscle tightness [Unknown]
  - Nausea [Unknown]
  - Decreased appetite [Unknown]
  - Myalgia [Recovered/Resolved]
